FAERS Safety Report 23433686 (Version 1)
Quarter: 2024Q1

REPORT INFORMATION
  Report Type: Spontaneous
  Country: SE (occurrence: SE)
  Receive Date: 20240123
  Receipt Date: 20240123
  Transmission Date: 20240410
  Serious: Yes (Other)
  Sender: FDA-Public Use
  Company Number: None

PATIENT
  Age: 13 Year
  Sex: Female
  Weight: 59.4 kg

DRUGS (7)
  1. RISPERDAL [Suspect]
     Active Substance: RISPERIDONE
     Indication: Anger
     Route: 065
     Dates: start: 2022, end: 20230907
  2. RISPERDAL [Suspect]
     Active Substance: RISPERIDONE
     Indication: Depressed mood
     Route: 065
  3. RISPERDAL [Suspect]
     Active Substance: RISPERIDONE
     Indication: Hallucination, visual
     Route: 065
  4. ESTRON [Concomitant]
     Indication: Product used for unknown indication
     Route: 065
     Dates: start: 2022
  5. MELATONIN [Concomitant]
     Active Substance: MELATONIN
     Indication: Product used for unknown indication
     Route: 065
     Dates: start: 2022
  6. PRIONELLE [Concomitant]
     Indication: Product used for unknown indication
     Route: 065
     Dates: end: 2022
  7. SERTRALINE [Concomitant]
     Active Substance: SERTRALINE HYDROCHLORIDE
     Indication: Product used for unknown indication
     Route: 065
     Dates: start: 2022

REACTIONS (2)
  - Breast discharge [Recovered/Resolved]
  - Blood prolactin increased [Recovered/Resolved]

NARRATIVE: CASE EVENT DATE: 20220101
